FAERS Safety Report 9438721 (Version 1)
Quarter: 2013Q3

REPORT INFORMATION
  Report Type: Spontaneous
  Country: TR (occurrence: TR)
  Receive Date: 20130802
  Receipt Date: 20130802
  Transmission Date: 20140515
  Serious: Yes (Hospitalization)
  Sender: FDA-Public Use
  Company Number: CHNY2013TR001646

PATIENT
  Age: 42 Year
  Sex: Female
  Weight: 90 kg

DRUGS (1)
  1. NICOTINELL TTS 30 [Suspect]
     Indication: SMOKING CESSATION THERAPY
     Dosage: 35 MG, QD
     Route: 062
     Dates: start: 20130115, end: 20130303

REACTIONS (2)
  - Bipolar disorder [Unknown]
  - Condition aggravated [Unknown]
